FAERS Safety Report 12744072 (Version 1)
Quarter: 2016Q3

REPORT INFORMATION
  Report Type: Spontaneous
  Country: US (occurrence: US)
  Receive Date: 20160914
  Receipt Date: 20160914
  Transmission Date: 20161109
  Serious: Yes (Other)
  Sender: FDA-Public Use
  Company Number: US-TEVA-691616USA

PATIENT
  Age: 32 Year
  Sex: Female

DRUGS (2)
  1. GLATIRAMER ACETATE. [Concomitant]
     Active Substance: GLATIRAMER ACETATE
     Route: 065
  2. METHYLPREDNISOLONE. [Suspect]
     Active Substance: METHYLPREDNISOLONE
     Indication: MULTIPLE SCLEROSIS
     Dosage: 1000 MILLIGRAM DAILY; 3 COURSES IN THE 5 MONTHS BEFORE PRESENTATION
     Route: 065

REACTIONS (2)
  - Necrotising retinitis [Not Recovered/Not Resolved]
  - Herpes simplex [Unknown]
